FAERS Safety Report 7293796-5 (Version None)
Quarter: 2011Q1

REPORT INFORMATION
  Report Type: 
  Country: None (occurrence: None)
  Receive Date: 20110203
  Receipt Date: 20090619
  Transmission Date: 20110831
  Serious: No
  Sender: FDA-Public Use
  Company Number: 2009-00074

PATIENT
  Age: 61 Year
  Sex: Female
  Weight: 64.8644 kg

DRUGS (2)
  1. ZICAM COLD REMEDY GEL SWABS [Suspect]
     Dosage: TID X 10 DOSES
     Dates: start: 20090301, end: 20090301
  2. PREMPRO [Concomitant]

REACTIONS (4)
  - NAUSEA [None]
  - BURNING SENSATION [None]
  - AGEUSIA [None]
  - ANOSMIA [None]
